FAERS Safety Report 6817689-X (Version None)
Quarter: 2010Q3

REPORT INFORMATION
  Report Type: 
  Country: None (occurrence: None)
  Receive Date: 20100706
  Receipt Date: 20100628
  Transmission Date: 20110219
  Serious: Yes (Other)
  Sender: FDA-Public Use
  Company Number: JP-PFIZER INC-2010080470

PATIENT
  Age: 35 Year
  Sex: Female

DRUGS (2)
  1. MYCOBUTIN [Suspect]
     Dosage: 150 MG, UNK
     Route: 048
  2. NELFINAVIR MESILATE [Interacting]
     Dosage: 1250 MG, 2X/DAY

REACTIONS (1)
  - LOSS OF CONSCIOUSNESS [None]
